FAERS Safety Report 9730441 (Version 2)
Quarter: 2013Q4

REPORT INFORMATION
  Report Type: Spontaneous
  Country: BE (occurrence: BE)
  Receive Date: 20131204
  Receipt Date: 20131204
  Transmission Date: 20140711
  Serious: Yes (Life-Threatening)
  Sender: FDA-Public Use
  Company Number: BE-ROCHE-1308561

PATIENT
  Age: 61 Year
  Sex: Female
  Weight: 100 kg

DRUGS (8)
  1. HERCEPTIN [Suspect]
     Indication: BREAST CANCER METASTATIC
     Route: 042
     Dates: start: 20111215
  2. ZOMETA [Suspect]
     Indication: METASTASES TO BONE
     Route: 042
     Dates: start: 20121215
  3. BEFACT [Concomitant]
     Route: 048
  4. DIOVANE [Concomitant]
     Route: 048
  5. OMEPRAZOLE [Concomitant]
     Route: 048
  6. ADALAT [Concomitant]
     Route: 048
  7. L-THYROXINE [Concomitant]
     Route: 048
  8. FENOFIBRATE [Concomitant]

REACTIONS (1)
  - Vasculitis [Recovering/Resolving]
